FAERS Safety Report 23574236 (Version 1)
Quarter: 2024Q1

REPORT INFORMATION
  Report Type: Spontaneous
  Country: GB (occurrence: GB)
  Receive Date: 20240228
  Receipt Date: 20240228
  Transmission Date: 20240410
  Serious: Yes (Other)
  Sender: FDA-Public Use
  Company Number: None

PATIENT
  Age: 82 Year
  Sex: Female
  Weight: 71 kg

DRUGS (12)
  1. METFORMIN [Suspect]
     Active Substance: METFORMIN HYDROCHLORIDE
     Indication: Diabetes mellitus
     Dosage: WITH FOOD FOR DIABETES (EGFR A
     Dates: start: 20231025
  2. HYDROCORTISONE\MICONAZOLE NITRATE [Concomitant]
     Active Substance: HYDROCORTISONE\MICONAZOLE NITRATE
     Indication: Product used for unknown indication
     Dosage: UNIT DOSE: 1 MILLIMOLE PER KILOGRAM?DAILY DOSE : 2 MILLIMOLE PER KILOGRAM
     Dates: start: 20240112, end: 20240113
  3. EUMOVATE [Concomitant]
     Active Substance: CLOBETASONE BUTYRATE
     Indication: Product used for unknown indication
     Dosage: APPLY 1-2 TIMES/DAY
     Dates: start: 20240112, end: 20240209
  4. ATORVASTATIN [Concomitant]
     Active Substance: ATORVASTATIN
     Indication: Product used for unknown indication
     Dosage: IN THE EVENING?UNIT DOSE: 1 MILLIMOLE PER KILOGRAM
     Dates: start: 20221122
  5. BISOPROLOL [Concomitant]
     Active Substance: BISOPROLOL\BISOPROLOL FUMARATE
     Indication: Product used for unknown indication
     Dosage: 1 MILLIMOLE PER KILOGRAM
     Dates: start: 20221122
  6. CETIRIZINE [Concomitant]
     Active Substance: CETIRIZINE HYDROCHLORIDE
     Indication: Product used for unknown indication
     Dosage: UNIT DOSE: 1 MILLIMOLE PER KILOGRAM
     Dates: start: 20231127, end: 20231227
  7. CLOPIDOGREL [Concomitant]
     Active Substance: CLOPIDOGREL BISULFATE
     Indication: Product used for unknown indication
     Dosage: (TO IMPROVE BLOOD CIRC?UNIT DOSE: 1 MILLIMOLE PER KILOGRAM
     Dates: start: 20221122
  8. GLICLAZIDE [Concomitant]
     Active Substance: GLICLAZIDE
     Indication: Product used for unknown indication
     Dosage: 20 MINUTES BEFORE BREAKFAST?UNIT DOSE: 1 MILLIMOLE PER KILOGRAM
     Dates: start: 20231121, end: 20231219
  9. PIOGLITAZONE [Concomitant]
     Active Substance: PIOGLITAZONE
     Indication: Product used for unknown indication
     Dosage: 1 TABLET ONCE A DAY
     Dates: start: 20221122
  10. RAMIPRIL [Concomitant]
     Active Substance: RAMIPRIL
     Indication: Hypertension
     Dosage: UNIT DOSE: 1 MILLIMOLE PER KILOGRAM
     Dates: start: 20221122
  11. TERBINAFINE [Concomitant]
     Active Substance: TERBINAFINE
     Indication: Product used for unknown indication
     Dosage: CONTINUE FOR A WEEK AFT.?UNIT DOSE: 1 MILLIMOLE PER KILOGRAM?DAILY DOSE: 2 MILLIMOLE PER KILOGRAM
     Dates: start: 20240112, end: 20240119
  12. HYDROCORTISONE [Concomitant]
     Active Substance: HYDROCORTISONE
     Indication: Product used for unknown indication
     Dosage: USE AS A SOAP SUBSTITITE AND AS A MOISTURISER F.
     Dates: start: 20231127, end: 20231225

REACTIONS (1)
  - Pemphigoid [Recovering/Resolving]

NARRATIVE: CASE EVENT DATE: 20240220
